FAERS Safety Report 16494274 (Version 1)
Quarter: 2019Q2

REPORT INFORMATION
  Report Type: Spontaneous
  Country: ES (occurrence: ES)
  Receive Date: 20190628
  Receipt Date: 20190628
  Transmission Date: 20190711
  Serious: Yes (Hospitalization)
  Sender: FDA-Public Use
  Company Number: ES-ACCORD-135389

PATIENT
  Age: 67 Year
  Sex: Female

DRUGS (5)
  1. BUSULFAN. [Interacting]
     Active Substance: BUSULFAN
     Indication: NON-HODGKIN^S LYMPHOMA
     Dosage: 240MG DAY
     Route: 042
     Dates: start: 20180912, end: 20180912
  2. MYCOPHENOLIC ACID. [Suspect]
     Active Substance: MYCOPHENOLIC ACID
     Indication: PROPHYLAXIS AGAINST GRAFT VERSUS HOST DISEASE
     Dosage: 600MG EVERY 8 HOURS
     Route: 048
     Dates: start: 20180923, end: 20181108
  3. TACROLIMUS. [Interacting]
     Active Substance: TACROLIMUS
     Indication: PROPHYLAXIS AGAINST GRAFT VERSUS HOST DISEASE
     Dosage: LAST ADMINISTRATION: 08-NOV-2018, SP
     Route: 048
     Dates: start: 20180923
  4. CYCLOPHOSPHAMIDE. [Interacting]
     Active Substance: CYCLOPHOSPHAMIDE
     Indication: B-CELL LYMPHOMA
     Dosage: 3000 MG
     Route: 042
     Dates: start: 20180911, end: 20180911
  5. MESNA. [Concomitant]
     Active Substance: MESNA
     Dosage: 3600 MG
     Route: 042
     Dates: start: 20180911, end: 20180912

REACTIONS (4)
  - Drug interaction [Unknown]
  - Cytomegalovirus infection [Recovered/Resolved]
  - Cystitis haemorrhagic [Recovered/Resolved]
  - BK polyomavirus test positive [Recovered/Resolved]

NARRATIVE: CASE EVENT DATE: 20181108
